FAERS Safety Report 5522183-2 (Version None)
Quarter: 2007Q4

REPORT INFORMATION
  Report Type: 
  Country: None (occurrence: None)
  Receive Date: 20071120
  Receipt Date: 20071115
  Transmission Date: 20080405
  Serious: Yes (Hospitalization)
  Sender: FDA-Public Use
  Company Number: A0694771A

PATIENT
  Age: 39 Year
  Sex: Male

DRUGS (11)
  1. BACTROBAN [Suspect]
     Route: 061
     Dates: start: 20071031
  2. COUMADIN [Suspect]
     Indication: DRUG USE FOR UNKNOWN INDICATION
     Dates: start: 20070101
  3. DEPAKOTE [Concomitant]
  4. LASIX [Concomitant]
  5. LEXAPRO [Concomitant]
  6. DONNATAL [Concomitant]
  7. VANCOMYCIN [Concomitant]
  8. VALTREX [Concomitant]
  9. FLAGYL [Concomitant]
  10. ATIVAN [Concomitant]
  11. METHADONE [Concomitant]

REACTIONS (5)
  - BLOOD MAGNESIUM INCREASED [None]
  - BLOOD POTASSIUM INCREASED [None]
  - METABOLIC DISORDER [None]
  - MINERAL METABOLISM DISORDER [None]
  - PROTHROMBIN TIME PROLONGED [None]
